FAERS Safety Report 10259487 (Version 1)
Quarter: 2014Q2

REPORT INFORMATION
  Report Type: Spontaneous
  Country: FR (occurrence: FR)
  Receive Date: 20140625
  Receipt Date: 20140625
  Transmission Date: 20141212
  Serious: Yes (Hospitalization)
  Sender: FDA-Public Use
  Company Number: FR-PFIZER INC-2014167968

PATIENT
  Age: 86 Year
  Sex: Female

DRUGS (9)
  1. TAHOR [Suspect]
     Dosage: 10 MG, DAILY
     Route: 048
  2. GLICLAZIDE [Suspect]
     Dosage: 30 MG, DAILY
     Route: 048
  3. NEBIVOLOL [Suspect]
     Dosage: 2.5 MG, DAILY
     Route: 048
  4. PRADAXA [Concomitant]
     Dosage: UNK
  5. FLECAINE [Concomitant]
     Dosage: UNK
  6. HYDROCORTISONE [Concomitant]
     Dosage: UNK
  7. LEVOTHYROX [Concomitant]
     Dosage: UNK
  8. ZOLPIDEM [Concomitant]
     Dosage: UNK
  9. EFFEXOR [Concomitant]
     Dosage: UNK

REACTIONS (7)
  - Fall [Recovered/Resolved]
  - Hypoglycaemia [Recovered/Resolved]
  - Orthostatic hypotension [Unknown]
  - Renal failure acute [Unknown]
  - Decreased appetite [Unknown]
  - Weight decreased [Unknown]
  - Fatigue [Unknown]
